FAERS Safety Report 13566656 (Version 7)
Quarter: 2018Q4

REPORT INFORMATION
  Report Type: Spontaneous
  Country: DE (occurrence: DE)
  Receive Date: 20170522
  Receipt Date: 20181008
  Transmission Date: 20190204
  Serious: Yes (Death, Life-Threatening, Other)
  Sender: FDA-Public Use
  Company Number: DE-SUN PHARMACEUTICAL INDUSTRIES LTD-2017RR-140925

PATIENT
  Age: 75 Year
  Sex: Male
  Weight: 82 kg

DRUGS (15)
  1. CYCLOPHOSPHAMID [Concomitant]
     Active Substance: CYCLOPHOSPHAMIDE
     Dosage: 3 CYCLES ()
     Route: 065
     Dates: start: 201312, end: 201402
  2. PREDNISOLON [Concomitant]
     Active Substance: PREDNISOLONE
     Indication: B-CELL LYMPHOMA
     Dosage: 6 CYCLES ()
     Route: 065
     Dates: start: 201302, end: 201306
  3. RITUXIMAB. [Suspect]
     Active Substance: RITUXIMAB
     Indication: B-CELL LYMPHOMA
     Dosage: ()
     Route: 065
     Dates: start: 201202, end: 201204
  4. BENDAMUSTINA [Concomitant]
     Active Substance: BENDAMUSTINE
     Indication: B-CELL LYMPHOMA
     Dosage: ()
     Route: 065
     Dates: start: 201202, end: 201204
  5. MIRTAZAPINE. [Suspect]
     Active Substance: MIRTAZAPINE
     Indication: PROGRESSIVE MULTIFOCAL LEUKOENCEPHALOPATHY
     Dosage: 60 MG, DAILY
     Route: 048
     Dates: start: 2015
  6. FLUDARABINE [Concomitant]
     Active Substance: FLUDARABINE PHOSPHATE
     Indication: B-CELL LYMPHOMA
     Dosage: 3 CYCLES, DUE TO DISEASE PROGRESSION AND HEMOLYSIS ()
     Route: 065
     Dates: start: 201309, end: 201311
  7. FLUDARABINE [Concomitant]
     Active Substance: FLUDARABINE PHOSPHATE
     Dosage: 3 CYCLES ()
     Route: 065
     Dates: start: 200812, end: 200904
  8. MEFLOQUINE [Suspect]
     Active Substance: MEFLOQUINE
     Dosage: 250 MG, ONCE WEEKLY, FOR THREE DAYS
     Route: 048
     Dates: start: 2015
  9. FLUDARABINE [Concomitant]
     Active Substance: FLUDARABINE PHOSPHATE
     Dosage: 3 CYCLES ()
     Route: 065
     Dates: start: 201312, end: 201402
  10. CHLORAMBUCIL [Concomitant]
     Active Substance: CHLORAMBUCIL
     Indication: B-CELL LYMPHOMA
     Dosage: ()
     Route: 065
     Dates: start: 201503
  11. MEFLOQUINE [Suspect]
     Active Substance: MEFLOQUINE
     Indication: PROGRESSIVE MULTIFOCAL LEUKOENCEPHALOPATHY
     Dosage: 250 MG, DAILY, FOR THREE DAYS
     Route: 048
     Dates: start: 2015
  12. IBRUTINIB [Suspect]
     Active Substance: IBRUTINIB
     Indication: B-CELL LYMPHOMA
     Dosage: ()
     Route: 065
     Dates: start: 20150304
  13. CYCLOPHOSPHAMID [Concomitant]
     Active Substance: CYCLOPHOSPHAMIDE
     Indication: B-CELL LYMPHOMA
     Dosage: ()
     Route: 065
     Dates: start: 200812, end: 200904
  14. CYCLOPHOSPHAMID [Concomitant]
     Active Substance: CYCLOPHOSPHAMIDE
     Dosage: 6 CYCLES ()
     Route: 065
     Dates: start: 201302, end: 201306
  15. EPIRUBICIN [Concomitant]
     Active Substance: EPIRUBICIN
     Indication: B-CELL LYMPHOMA
     Dosage: 6 CYCLES ()
     Route: 065
     Dates: start: 201302, end: 201306

REACTIONS (10)
  - Atypical pneumonia [Fatal]
  - Condition aggravated [Fatal]
  - Atrial fibrillation [Fatal]
  - Progressive multifocal leukoencephalopathy [Fatal]
  - Diarrhoea [Fatal]
  - Polyneuropathy [Fatal]
  - Hyperkeratosis [Fatal]
  - Drug ineffective [Fatal]
  - Bone marrow failure [Fatal]
  - Squamous cell carcinoma [Fatal]

NARRATIVE: CASE EVENT DATE: 201204
